FAERS Safety Report 4361173-2 (Version None)
Quarter: 2004Q2

REPORT INFORMATION
  Report Type: 
  Country: None (occurrence: None)
  Receive Date: 20040507
  Receipt Date: 20030509
  Transmission Date: 20050107
  Serious: Yes (Other)
  Sender: FDA-Public Use
  Company Number: PHEH2003US03405

PATIENT
  Age: 58 Year
  Sex: Male
  Weight: 113.4 kg

DRUGS (5)
  1. TEGRETOL [Suspect]
     Indication: CONVULSION
     Dosage: 500 MG, TID, ORAL
     Route: 048
     Dates: start: 19991201
  2. VITAMIN C [Concomitant]
  3. CENTRUM (VITAMINS NOS) [Concomitant]
  4. KEPPRA [Concomitant]
  5. TRANXENE [Concomitant]

REACTIONS (5)
  - DERMATITIS EXFOLIATIVE [None]
  - ERYTHEMA [None]
  - OEDEMA PERIPHERAL [None]
  - PHOTOSENSITIVITY REACTION [None]
  - PRURITUS [None]
